FAERS Safety Report 6262147-7 (Version None)
Quarter: 2009Q3

REPORT INFORMATION
  Report Type: 
  Country: None (occurrence: None)
  Receive Date: 20090709
  Receipt Date: 20090708
  Transmission Date: 20100115
  Serious: Yes (Other)
  Sender: FDA-Public Use
  Company Number: CH-BAYER-200925113GPV

PATIENT
  Age: 64 Year
  Sex: Female
  Weight: 66 kg

DRUGS (4)
  1. SORAFENIB [Suspect]
     Indication: GLIOMA
     Dosage: TOTAL DAILY DOSE: 200 MG
     Route: 048
     Dates: start: 20090525
  2. TEMOZOLOMIDE [Suspect]
     Indication: GLIOMA
     Route: 048
  3. KEPPRA [Concomitant]
     Dosage: AS USED: 500 MG
     Route: 048
  4. DAFALGAN [Concomitant]
     Dosage: AS USED: 1000 MG
     Route: 048

REACTIONS (3)
  - BRADYCARDIA [None]
  - DEEP VEIN THROMBOSIS [None]
  - PULMONARY EMBOLISM [None]
